FAERS Safety Report 20967822 (Version 1)
Quarter: 2022Q2

REPORT INFORMATION
  Report Type: Spontaneous
  Country: US (occurrence: US)
  Receive Date: 20220616
  Receipt Date: 20220616
  Transmission Date: 20220721
  Serious: No
  Sender: FDA-Public Use
  Company Number: US-PFIZER INC-PV202200002277

PATIENT
  Age: 65 Year
  Sex: Male

DRUGS (2)
  1. INLYTA [Suspect]
     Active Substance: AXITINIB
     Dosage: UNK (STANDARD DOSING)
  2. INLYTA [Suspect]
     Active Substance: AXITINIB
     Dosage: 5 MG, ALTERNATE DAY,EVERY OTHER DAY

REACTIONS (3)
  - Off label use [Unknown]
  - Product use issue [Unknown]
  - Hypertension [Unknown]
